FAERS Safety Report 13268136 (Version 1)
Quarter: 2017Q1

REPORT INFORMATION
  Report Type: Spontaneous
  Country: US (occurrence: US)
  Receive Date: 20170131
  Receipt Date: 20170131
  Transmission Date: 20170428
  Serious: Yes (Other)
  Sender: FDA-Public Use
  Company Number: None

PATIENT
  Age: 67 Year
  Sex: Male
  Weight: 110 kg

DRUGS (1)
  1. DAPTOMYCIN 500 MG [Suspect]
     Active Substance: DAPTOMYCIN
     Indication: ARTHRITIS BACTERIAL
     Dosage: 600 MG Q24 IV
     Route: 042
     Dates: start: 20161111, end: 20161117

REACTIONS (2)
  - Blood creatine phosphokinase increased [None]
  - Arthralgia [None]

NARRATIVE: CASE EVENT DATE: 20161117
